FAERS Safety Report 6379159-5 (Version None)
Quarter: 2009Q3

REPORT INFORMATION
  Report Type: 
  Country: None (occurrence: None)
  Receive Date: 20090928
  Receipt Date: 20090916
  Transmission Date: 20100115
  Serious: Yes (Other)
  Sender: FDA-Public Use
  Company Number: US-MYLANLABS-2009S1016238

PATIENT
  Age: 62 Year
  Sex: Female

DRUGS (6)
  1. AMNESTEEM [Suspect]
     Indication: PITYRIASIS RUBRA PILARIS
     Route: 048
     Dates: start: 20090615, end: 20090914
  2. PROZAC [Suspect]
     Route: 048
     Dates: start: 20090601
  3. XANAX [Concomitant]
  4. HYDROCHLOROTHIAZIDE [Concomitant]
  5. TRIAMCINOLON /00031901/ [Concomitant]
     Route: 061
     Dates: start: 20090501
  6. CENTANY [Concomitant]
     Route: 061
     Dates: start: 20090817

REACTIONS (2)
  - DEPRESSION [None]
  - SUICIDAL IDEATION [None]
